FAERS Safety Report 10144327 (Version 2)
Quarter: 2014Q3

REPORT INFORMATION
  Report Type: Spontaneous
  Country: FR (occurrence: FR)
  Receive Date: 20140430
  Receipt Date: 20140806
  Transmission Date: 20150326
  Serious: Yes (Hospitalization)
  Sender: FDA-Public Use
  Company Number: FR-BRISTOL-MYERS SQUIBB COMPANY-20665071

PATIENT
  Age: 12 Year
  Sex: Female

DRUGS (17)
  1. DOXORUBICIN [Concomitant]
     Active Substance: DOXORUBICIN
     Indication: EWING^S SARCOMA METASTATIC
     Route: 042
     Dates: start: 20140120, end: 20140121
  2. NUBAIN [Concomitant]
     Active Substance: NALBUPHINE HYDROCHLORIDE
  3. FORLAX [Concomitant]
     Active Substance: POLYETHYLENE GLYCOL 4000
     Indication: CONSTIPATION
     Route: 048
     Dates: start: 20140118, end: 20140119
  4. ZOPHREN [Concomitant]
     Active Substance: ONDANSETRON
  5. ETOPOPHOS [Suspect]
     Active Substance: ETOPOSIDE PHOSPHATE
     Indication: EWING^S SARCOMA METASTATIC
     Route: 042
     Dates: start: 20140120
  6. IFOSFAMIDE. [Suspect]
     Active Substance: IFOSFAMIDE
     Indication: EWING^S SARCOMA METASTATIC
     Route: 042
     Dates: start: 20140120
  7. UROMITEXAN INJ [Suspect]
     Active Substance: MESNA
     Dosage: STRENGTH:1G/10 ML INJ SOLUTION FOR INFUSION?21JAN14
     Route: 042
     Dates: start: 20140120, end: 20140123
  8. ROCEPHINE [Concomitant]
     Active Substance: CEFTRIAXONE SODIUM
     Dosage: 2 G POWDER FOR INFUSION SOLUTION
     Route: 042
     Dates: start: 20140119, end: 20140124
  9. PERFALGAN IV [Concomitant]
     Indication: PAIN
     Route: 042
     Dates: start: 20140119
  10. MORPHINE [Concomitant]
     Active Substance: MORPHINE
  11. RIVOTRIL [Concomitant]
     Active Substance: CLONAZEPAM
  12. PLITICAN [Suspect]
     Active Substance: ALIZAPRIDE HYDROCHLORIDE
     Dosage: INJECTABLE SOLUTION
     Route: 042
     Dates: start: 20140120, end: 20140121
  13. POLARAMINE [Concomitant]
     Active Substance: DEXCHLORPHENIRAMINE MALEATE
     Indication: HYPERSENSITIVITY
     Route: 042
     Dates: start: 20140118, end: 20140122
  14. ATARAX [Concomitant]
     Active Substance: HYDROXYZINE\HYDROXYZINE HYDROCHLORIDE
     Indication: SEDATION
     Dosage: SCORED FILM-COATED TABLET
     Route: 048
     Dates: start: 20140118, end: 20140122
  15. HYPNOVEL [Concomitant]
     Active Substance: MIDAZOLAM\MIDAZOLAM HYDROCHLORIDE
     Indication: SEDATION
     Route: 048
     Dates: start: 20140120
  16. ONCOVIN [Concomitant]
     Active Substance: VINCRISTINE SULFATE
     Indication: EWING^S SARCOMA
     Route: 042
     Dates: start: 20140120
  17. KETAMINE [Concomitant]
     Active Substance: KETAMINE

REACTIONS (13)
  - Somnolence [Recovered/Resolved]
  - Skin discolouration [None]
  - Off label use [Unknown]
  - Irritability [None]
  - Neurotoxicity [Recovered/Resolved]
  - Clonic convulsion [Recovered/Resolved]
  - Malignant neoplasm progression [None]
  - Metastases to bone [None]
  - Speech disorder [Recovered/Resolved]
  - Incoherent [None]
  - Metastases to spine [None]
  - Confusional state [None]
  - Disorientation [Recovered/Resolved]

NARRATIVE: CASE EVENT DATE: 20140120
